FAERS Safety Report 7531246 (Version 3)
Quarter: 2014Q2

REPORT INFORMATION
  Report Type: Spontaneous
  Country: US (occurrence: US)
  Receive Date: 20100806
  Receipt Date: 20140428
  Transmission Date: 20141212
  Serious: Yes (Hospitalization, Other)
  Sender: FDA-Public Use
  Company Number: US-BAYER-201029432NA

PATIENT
  Age: 29 Year
  Sex: Female
  Weight: 60 kg

DRUGS (4)
  1. YASMIN [Suspect]
     Indication: CONTRACEPTION
     Dosage: UNK UNK, UNK
     Route: 048
     Dates: start: 200701, end: 20071215
  2. YASMIN [Suspect]
     Indication: CONTRACEPTION
     Dosage: UNK
     Dates: start: 20010601, end: 200501
  3. CHLOROQUINE PHOSPHATE [Concomitant]
     Dosage: 500 MG, UNK
     Route: 048
  4. VIVOTIF BERNA [Concomitant]

REACTIONS (4)
  - Cholelithiasis [Unknown]
  - Abdominal pain [Unknown]
  - Cholesterosis [Unknown]
  - Cholecystitis chronic [Unknown]
